FAERS Safety Report 12735626 (Version 1)
Quarter: 2016Q3

REPORT INFORMATION
  Report Type: Spontaneous
  Country: US (occurrence: US)
  Receive Date: 20160913
  Receipt Date: 20160913
  Transmission Date: 20161109
  Serious: Yes (Other)
  Sender: FDA-Public Use
  Company Number: US-BAUSCH-BL-2016-022063

PATIENT
  Age: 85 Year
  Sex: Male

DRUGS (1)
  1. EFUDEX [Suspect]
     Active Substance: FLUOROURACIL
     Route: 061

REACTIONS (2)
  - Accidental exposure to product [Recovering/Resolving]
  - Ectropion [Recovering/Resolving]
